FAERS Safety Report 25013662 (Version 1)
Quarter: 2025Q1

REPORT INFORMATION
  Report Type: Spontaneous
  Country: ES (occurrence: ES)
  Receive Date: 20250226
  Receipt Date: 20250226
  Transmission Date: 20250408
  Serious: Yes (Death, Hospitalization, Other)
  Sender: MERCK SHARP & DOHME LLC
  Company Number: ES-MABO-2025008960

PATIENT
  Age: 92 Year
  Sex: Female

DRUGS (8)
  1. SITAGLIPTIN [Suspect]
     Active Substance: SITAGLIPTIN
     Route: 065
  2. ASPIRIN [Suspect]
     Active Substance: ASPIRIN
     Route: 065
  3. OMEPRAZOLE [Suspect]
     Active Substance: OMEPRAZOLE
     Route: 065
  4. ACETAMINOPHEN [Suspect]
     Active Substance: ACETAMINOPHEN
     Route: 065
  5. CLOPIDOGREL [Suspect]
     Active Substance: CLOPIDOGREL BISULFATE
     Route: 065
  6. REPAGLINIDE [Suspect]
     Active Substance: REPAGLINIDE
     Route: 065
  7. CAFFEINE CITRATE\NITROGLYCERIN [Suspect]
     Active Substance: CAFFEINE CITRATE\NITROGLYCERIN
     Route: 060
  8. PRAVASTATIN [Suspect]
     Active Substance: PRAVASTATIN
     Route: 065

REACTIONS (7)
  - Death [Fatal]
  - Acute myocardial infarction [Fatal]
  - Oropharyngeal discomfort [Fatal]
  - Cardiac failure [Fatal]
  - Respiratory tract infection [Fatal]
  - Pleural effusion [Fatal]
  - Dyspnoea [Fatal]
